FAERS Safety Report 24673428 (Version 6)
Quarter: 2025Q1

REPORT INFORMATION
  Report Type: Report from Study
  Country: ES (occurrence: ES)
  Receive Date: 20241128
  Receipt Date: 20250102
  Transmission Date: 20250409
  Serious: Yes (Hospitalization, Other)
  Sender: ABBVIE
  Company Number: ES-ABBVIE-6023499

PATIENT
  Age: 72 Year
  Sex: Female

DRUGS (4)
  1. CARBIDOPA\LEVODOPA [Suspect]
     Active Substance: CARBIDOPA\LEVODOPA
     Indication: Parkinson^s disease
     Route: 058
     Dates: start: 20241113, end: 20241123
  2. CARBIDOPA\LEVODOPA [Suspect]
     Active Substance: CARBIDOPA\LEVODOPA
     Route: 058
     Dates: start: 20241123, end: 20241125
  3. CARBIDOPA\LEVODOPA [Suspect]
     Active Substance: CARBIDOPA\LEVODOPA
     Route: 058
     Dates: start: 20241125
  4. CARBIDOPA\LEVODOPA [Suspect]
     Active Substance: CARBIDOPA\LEVODOPA
     Route: 058
     Dates: start: 2024

REACTIONS (10)
  - Musculoskeletal stiffness [Recovered/Resolved]
  - Product administration error [Unknown]
  - Overdose [Unknown]
  - Parkinson^s disease [Unknown]
  - Dyskinesia [Recovered/Resolved]
  - Somnolence [Recovered/Resolved]
  - Confusional state [Unknown]
  - Movement disorder [Recovered/Resolved]
  - Freezing phenomenon [Unknown]
  - Freezing phenomenon [Unknown]

NARRATIVE: CASE EVENT DATE: 20240101
